FAERS Safety Report 6296244-7 (Version None)
Quarter: 2009Q3

REPORT INFORMATION
  Report Type: 
  Country: None (occurrence: None)
  Receive Date: 20090803
  Receipt Date: 20090803
  Transmission Date: 20100115
  Serious: Yes (Other)
  Sender: FDA-Public Use
  Company Number: None

PATIENT
  Age: 27 Year
  Sex: Female
  Weight: 106.5953 kg

DRUGS (8)
  1. SAVELLA [Suspect]
     Indication: FIBROMYALGIA
     Dosage: 50 MG -TOTAL 100MG- 2 TIMES DAILY PO
     Route: 048
     Dates: start: 20090601, end: 20090801
  2. ACIPHEX [Concomitant]
  3. FLEXERIL [Concomitant]
  4. ZOFRAN [Concomitant]
  5. PROZAC [Concomitant]
  6. CLONAZEPAM [Concomitant]
  7. VICODIN ES [Concomitant]
  8. TORADOL [Concomitant]

REACTIONS (9)
  - CONSTIPATION [None]
  - DRUG INEFFECTIVE [None]
  - FATIGUE [None]
  - HEADACHE [None]
  - HEART RATE INCREASED [None]
  - MYALGIA [None]
  - NAUSEA [None]
  - PAIN [None]
  - VOMITING [None]
